FAERS Safety Report 13448732 (Version 3)
Quarter: 2017Q2

REPORT INFORMATION
  Report Type: Spontaneous
  Country: US (occurrence: US)
  Receive Date: 20170417
  Receipt Date: 20170419
  Transmission Date: 20170830
  Serious: Yes (Hospitalization)
  Sender: FDA-Public Use
  Company Number: US-TEVA-757096USA

PATIENT
  Age: 59 Year
  Sex: Female
  Weight: 94.43 kg

DRUGS (15)
  1. TAGAMET [Concomitant]
     Active Substance: CIMETIDINE
     Indication: HIATUS HERNIA
  2. ONDANSETRON [Concomitant]
     Active Substance: ONDANSETRON
     Indication: NAUSEA
  3. PROVIGIL [Suspect]
     Active Substance: MODAFINIL
     Route: 065
  4. NORCO [Concomitant]
     Active Substance: ACETAMINOPHEN\HYDROCODONE BITARTRATE
     Indication: PAIN
  5. SPIRIVA [Concomitant]
     Active Substance: TIOTROPIUM BROMIDE MONOHYDRATE
     Indication: CHRONIC OBSTRUCTIVE PULMONARY DISEASE
  6. IRON VITAMIN [Concomitant]
     Indication: ANAEMIA
  7. PROTONIX [Concomitant]
     Active Substance: PANTOPRAZOLE SODIUM
     Indication: HIATUS HERNIA
  8. TIZANIDINE. [Concomitant]
     Active Substance: TIZANIDINE
     Indication: EXOSTOSIS
  9. NUVIGIL [Suspect]
     Active Substance: ARMODAFINIL
     Indication: ANAEMIA
  10. CYMBALTA [Concomitant]
     Active Substance: DULOXETINE HYDROCHLORIDE
     Indication: NEUROPATHY PERIPHERAL
  11. NUVIGIL [Suspect]
     Active Substance: ARMODAFINIL
     Indication: SHIFT WORK DISORDER
  12. TIZANIDINE. [Concomitant]
     Active Substance: TIZANIDINE
     Indication: MUSCLE RELAXANT THERAPY
  13. POTASSIUM [Concomitant]
     Active Substance: POTASSIUM
     Indication: SUPPLEMENTATION THERAPY
  14. ALBUTEROL. [Concomitant]
     Active Substance: ALBUTEROL
     Indication: CHRONIC OBSTRUCTIVE PULMONARY DISEASE
  15. NUVIGIL [Suspect]
     Active Substance: ARMODAFINIL
     Indication: SLEEP DISORDER
     Dates: start: 2013

REACTIONS (5)
  - Product use in unapproved indication [Unknown]
  - Hiatus hernia [Recovered/Resolved]
  - Weight increased [Unknown]
  - Somnolence [Recovered/Resolved]
  - Drug ineffective [Unknown]

NARRATIVE: CASE EVENT DATE: 201701
